FAERS Safety Report 10040146 (Version 2)
Quarter: 2014Q2

REPORT INFORMATION
  Report Type: Report from Study
  Country: US (occurrence: US)
  Receive Date: 20140326
  Receipt Date: 20140429
  Transmission Date: 20141212
  Serious: Yes (Hospitalization, Other)
  Sender: FDA-Public Use
  Company Number: US-MYLANLABS-2014S1006515

PATIENT
  Age: 73 Year
  Sex: Male
  Weight: 72.7 kg

DRUGS (18)
  1. LEVETIRACETAM [Suspect]
     Indication: CONVULSION
     Route: 048
     Dates: start: 20131209, end: 20131210
  2. LEVETIRACETAM [Suspect]
     Indication: PROPHYLAXIS
     Route: 048
     Dates: start: 20131209, end: 20131210
  3. LEVETIRACETAM [Suspect]
     Indication: CONVULSION
     Route: 048
     Dates: start: 20131210
  4. LEVETIRACETAM [Suspect]
     Indication: PROPHYLAXIS
     Route: 048
     Dates: start: 20131210
  5. FOLFIRINOX [Suspect]
     Indication: PANCREATIC CARCINOMA
     Route: 042
     Dates: start: 20130930, end: 20131111
  6. INVESTIGATIONAL DRUG [Suspect]
     Indication: PANCREATIC CARCINOMA
     Route: 048
     Dates: start: 20130930, end: 20131122
  7. MARINOL /00897601/ [Concomitant]
  8. ALBUTEROL [Concomitant]
  9. ASPIRIN [Concomitant]
  10. ATORVASTATIN [Concomitant]
  11. NITROSTAT [Concomitant]
  12. CLOPIDOGREL [Concomitant]
  13. HYDROCODONE + ACETAMINOPHEN [Concomitant]
  14. LOSARTAN [Concomitant]
  15. SYMBICORT [Concomitant]
  16. LOVENOX [Concomitant]
     Dates: end: 201312
  17. TERAZOSIN [Concomitant]
  18. CALCIUM [Concomitant]

REACTIONS (1)
  - Convulsion [Recovered/Resolved]
